FAERS Safety Report 10239449 (Version 1)
Quarter: 2014Q2

REPORT INFORMATION
  Report Type: Spontaneous
  Country: US (occurrence: US)
  Receive Date: 20140616
  Receipt Date: 20140616
  Transmission Date: 20141212
  Serious: No
  Sender: FDA-Public Use
  Company Number: US-PFIZER INC-2014162772

PATIENT
  Age: 50 Year
  Sex: Female
  Weight: 70.3 kg

DRUGS (4)
  1. LYRICA [Suspect]
     Indication: FIBROMYALGIA
     Dosage: 75 MG, 2X/DAY
     Dates: start: 2013
  2. LYRICA [Suspect]
     Indication: POLYARTHRITIS
  3. NAPROXEN [Concomitant]
     Dosage: UNK,2X/DAY
  4. HYDROXYCHLOROQUINE [Concomitant]
     Dosage: 200 MG, 2X/DAY

REACTIONS (1)
  - Drug effect incomplete [Unknown]
